FAERS Safety Report 6706438-1 (Version None)
Quarter: 2010Q2

REPORT INFORMATION
  Report Type: 
  Country: None (occurrence: None)
  Receive Date: 20100503
  Receipt Date: 20100423
  Transmission Date: 20101027
  Serious: Yes (Life-Threatening, Hospitalization)
  Sender: FDA-Public Use
  Company Number: DE-AMGEN-US409103

PATIENT
  Sex: Male
  Weight: 88 kg

DRUGS (4)
  1. ENBREL [Suspect]
     Indication: POLYARTHRITIS
     Route: 058
     Dates: start: 20100301, end: 20100401
  2. ARCOXIA [Concomitant]
     Dosage: UNKNOWN
     Route: 065
  3. PREDNISOLONE [Concomitant]
     Dosage: UNKNOWN
     Route: 065
  4. METHOTREXATE [Concomitant]
     Indication: POLYARTHRITIS
     Dosage: UNKNOWN
     Route: 065

REACTIONS (2)
  - ALVEOLITIS ALLERGIC [None]
  - ANAEMIA [None]
